FAERS Safety Report 19029625 (Version 5)
Quarter: 2021Q2

REPORT INFORMATION
  Report Type: Report from Study
  Country: None (occurrence: US)
  Receive Date: 20210318
  Receipt Date: 20210623
  Transmission Date: 20210717
  Serious: Yes (Hospitalization, Other)
  Sender: FDA-Public Use
  Company Number: US-ABBVIE-21K-163-3817797-00

PATIENT
  Age: 68 Year
  Sex: Female
  Weight: 48.58 kg

DRUGS (5)
  1. RINVOQ [Suspect]
     Active Substance: UPADACITINIB
     Route: 048
  2. OXYGEN. [Concomitant]
     Active Substance: OXYGEN
     Indication: PRODUCT USED FOR UNKNOWN INDICATION
  3. METHOTREXATE. [Concomitant]
     Active Substance: METHOTREXATE
     Indication: RHEUMATOID ARTHRITIS
  4. RINVOQ [Suspect]
     Active Substance: UPADACITINIB
     Route: 048
     Dates: start: 20210321
  5. RINVOQ [Suspect]
     Active Substance: UPADACITINIB
     Indication: RHEUMATOID ARTHRITIS
     Route: 048
     Dates: end: 202103

REACTIONS (8)
  - Pneumonia [Unknown]
  - Nasal herpes [Unknown]
  - Weight decreased [Recovering/Resolving]
  - Nerve compression [Unknown]
  - Oral herpes [Unknown]
  - Alopecia [Unknown]
  - COVID-19 [Recovering/Resolving]
  - Auditory disorder [Recovering/Resolving]

NARRATIVE: CASE EVENT DATE: 20210217
